FAERS Safety Report 13623141 (Version 1)
Quarter: 2017Q2

REPORT INFORMATION
  Report Type: Spontaneous
  Country: IN (occurrence: IN)
  Receive Date: 20170607
  Receipt Date: 20170607
  Transmission Date: 20170830
  Serious: Yes (Other)
  Sender: FDA-Public Use
  Company Number: IN-TORRENT-00001192

PATIENT
  Sex: Female

DRUGS (7)
  1. LITHIUM. [Suspect]
     Active Substance: LITHIUM
  2. OLANZAPINE. [Suspect]
     Active Substance: OLANZAPINE
  3. GLIMEPIRIDE. [Concomitant]
     Active Substance: GLIMEPIRIDE
  4. FLUOXETINE HYDROCHLORIDE. [Suspect]
     Active Substance: FLUOXETINE HYDROCHLORIDE
  5. CLOZAPINE. [Suspect]
     Active Substance: CLOZAPINE
  6. RISPERIDONE. [Suspect]
     Active Substance: RISPERIDONE
  7. METFORMIN HYDROCHLORIDE. [Concomitant]
     Active Substance: METFORMIN HYDROCHLORIDE

REACTIONS (6)
  - Salivary hypersecretion [Unknown]
  - Diabetes mellitus [Unknown]
  - Sedation [Unknown]
  - Drug ineffective [Unknown]
  - Obesity [Unknown]
  - Weight decreased [Unknown]
